FAERS Safety Report 19767805 (Version 4)
Quarter: 2022Q1

REPORT INFORMATION
  Report Type: Report from Study
  Country: PA (occurrence: None)
  Receive Date: 20210831
  Receipt Date: 20220123
  Transmission Date: 20220424
  Serious: Yes (Hospitalization)
  Sender: FDA-Public Use
  Company Number: PA-ROCHE-2897997

PATIENT
  Age: 42 Year
  Sex: Female
  Weight: 81 kg

DRUGS (8)
  1. TIRAGOLUMAB [Suspect]
     Active Substance: TIRAGOLUMAB
     Indication: Cervix carcinoma
     Dosage: DATE OF MOST RECENT DOSE (600 MG) PRIOR TO AE ON 30/JUN/2021 AND SAE ON 18/AUG/2021 DAY 1 OF EACH 21
     Route: 042
     Dates: start: 20210224
  2. ATEZOLIZUMAB [Suspect]
     Active Substance: ATEZOLIZUMAB
     Indication: Cervix carcinoma
     Dosage: MOST RECENT DOSE (1200 MG) OF ATEZOLIZUMAB PRIOR AE ON 30/JUN/2021 AND SAE ONSET ON 18/AUG/2021 DAY
     Route: 041
     Dates: start: 20210224
  3. WARFARIN [Concomitant]
     Active Substance: WARFARIN
     Indication: Deep vein thrombosis
     Route: 048
     Dates: start: 2020
  4. ACETAMINOPHEN [Concomitant]
     Active Substance: ACETAMINOPHEN
     Route: 048
  5. TRAMADOL [Concomitant]
     Active Substance: TRAMADOL
     Route: 048
     Dates: start: 20210224
  6. ROCEPHIN [Concomitant]
     Active Substance: CEFTRIAXONE SODIUM
     Indication: Hydronephrosis
     Route: 042
     Dates: start: 20210717, end: 20210717
  7. CEFIXIME [Concomitant]
     Active Substance: CEFIXIME
  8. AMLODIPINE [Concomitant]
     Active Substance: AMLODIPINE BESYLATE
     Indication: Hypertension
     Dates: start: 20210824

REACTIONS (1)
  - Haematuria [Recovered/Resolved]

NARRATIVE: CASE EVENT DATE: 20210717
